FAERS Safety Report 5865049-0 (Version None)
Quarter: 2008Q3

REPORT INFORMATION
  Report Type: 
  Country: None (occurrence: None)
  Receive Date: 20080829
  Receipt Date: 20080822
  Transmission Date: 20090109
  Serious: Yes (Hospitalization)
  Sender: FDA-Public Use
  Company Number: A0726129A

PATIENT
  Age: 31 Year
  Sex: Female
  Weight: 74 kg

DRUGS (4)
  1. AEROLIN [Suspect]
     Dosage: 2MG PER DAY
     Route: 048
     Dates: start: 20080402
  2. DACTIL OB [Concomitant]
     Dates: start: 20080402, end: 20080424
  3. BUSCOPAN [Concomitant]
     Dates: start: 20080423
  4. MULTI-VITAMIN [Concomitant]

REACTIONS (5)
  - DRUG EXPOSURE DURING PREGNANCY [None]
  - DYSPNOEA [None]
  - IRRITABILITY [None]
  - LIVE BIRTH [None]
  - SLEEP DISORDER [None]
